FAERS Safety Report 4381050-0 (Version None)
Quarter: 2004Q2

REPORT INFORMATION
  Report Type: 
  Country: None (occurrence: None)
  Receive Date: 20040601
  Receipt Date: 20040409
  Transmission Date: 20050107
  Serious: No
  Sender: FDA-Public Use
  Company Number: FABR-10536

PATIENT
  Age: 48 Year
  Sex: Female
  Weight: 87.5442 kg

DRUGS (2)
  1. FABRAZYME [Suspect]
     Indication: FABRY'S DISEASE
     Dosage: 1 MG/KG Q2WKS IV
     Route: 042
     Dates: start: 20040408
  2. CLARITIN [Concomitant]

REACTIONS (6)
  - BLOOD PRESSURE INCREASED [None]
  - COLD SWEAT [None]
  - DIZZINESS [None]
  - FATIGUE [None]
  - FLUSHING [None]
  - NAUSEA [None]
